FAERS Safety Report 7604590-7 (Version None)
Quarter: 2011Q3

REPORT INFORMATION
  Report Type: 
  Country: None (occurrence: None)
  Receive Date: 20110712
  Receipt Date: 20110705
  Transmission Date: 20111222
  Serious: Yes (Other)
  Sender: FDA-Public Use
  Company Number: DE-PFIZER INC-2011127195

PATIENT
  Age: 60 Year
  Sex: Male
  Weight: 82 kg

DRUGS (8)
  1. FUROSEMIDE [Concomitant]
     Dosage: 125 DAILY
  2. CALCITRIOL [Concomitant]
     Dosage: 0.25 UG, 3X/WEEK
  3. LYRICA [Suspect]
     Dosage: 75 MG, 1X/DAY
     Dates: start: 20110502, end: 20110511
  4. BISOPROLOL [Concomitant]
     Dosage: 2.5 DAILY
  5. ACYCLOVIR [Concomitant]
     Dosage: 800 UNK, 5 TABLETS DAILY
     Dates: start: 20110414, end: 20110420
  6. LYRICA [Suspect]
     Indication: HERPES ZOSTER
     Dosage: 25 MG, 2X/DAY
     Route: 048
     Dates: start: 20110406, end: 20110408
  7. LYRICA [Suspect]
     Dosage: 75 MG, 2X/DAY
     Route: 048
     Dates: start: 20110409, end: 20110501
  8. HERBAL NOS AND VITAMINS NOS [Concomitant]
     Dosage: 1 DF, 1X/DAY

REACTIONS (8)
  - PSYCHOMOTOR HYPERACTIVITY [None]
  - BLOOD UREA INCREASED [None]
  - DRUG WITHDRAWAL SYNDROME [None]
  - INSOMNIA [None]
  - RESTLESSNESS [None]
  - GAMMA-GLUTAMYLTRANSFERASE INCREASED [None]
  - BLOOD CREATININE INCREASED [None]
  - RESTLESS LEGS SYNDROME [None]
